FAERS Safety Report 15097201 (Version 4)
Quarter: 2018Q3

REPORT INFORMATION
  Report Type: Spontaneous
  Country: AU (occurrence: AU)
  Receive Date: 20180702
  Receipt Date: 20180718
  Transmission Date: 20181010
  Serious: Yes (Other)
  Sender: FDA-Public Use
  Company Number: AU-GLAXOSMITHKLINE-AU2018GSK107850

PATIENT
  Sex: Male

DRUGS (2)
  1. ASMOL (SALBUTAMOL SULFATE) [Suspect]
     Active Substance: ALBUTEROL SULFATE
     Indication: PRODUCT USED FOR UNKNOWN INDICATION
     Dosage: 2 PUFF(S), UNK
  2. ASMOL (SALBUTAMOL SULFATE) [Suspect]
     Active Substance: ALBUTEROL SULFATE
     Dosage: UNK UNK, PRN

REACTIONS (9)
  - Sputum discoloured [Unknown]
  - Productive cough [Unknown]
  - Feeling abnormal [Unknown]
  - Retching [Unknown]
  - Cough [Unknown]
  - Nausea [Unknown]
  - Choking sensation [Unknown]
  - Foreign body in respiratory tract [Unknown]
  - Product quality issue [Unknown]
